FAERS Safety Report 8936813 (Version 1)
Quarter: 2012Q4

REPORT INFORMATION
  Report Type: 
  Country: DE (occurrence: DE)
  Receive Date: 20121130
  Receipt Date: 20121130
  Transmission Date: 20130627
  Serious: Yes (Hospitalization, Other)
  Sender: FDA-Public Use
  Company Number: PHHY2012DE108172

PATIENT
  Sex: Male
  Weight: 101 kg

DRUGS (5)
  1. CLOZAPINE [Suspect]
     Indication: SCHIZOPHRENIA, RESIDUAL TYPE
     Dosage: 1 DF, (150 - 250 mg), daily
     Route: 048
     Dates: start: 20110430
  2. LEPONEX [Suspect]
     Indication: SCHIZOPHRENIA, RESIDUAL TYPE
  3. ERGENYL [Suspect]
     Indication: SCHIZOPHRENIA, RESIDUAL TYPE
     Dosage: 1500 mg, UNK
  4. GLIANIMON [Suspect]
     Indication: SCHIZOPHRENIA, RESIDUAL TYPE
     Dosage: 10 mg, UNK
  5. ATOSIL [Concomitant]
     Dosage: 80 mg, UNK

REACTIONS (10)
  - Sleep disorder [Unknown]
  - Mood swings [Unknown]
  - Tinnitus [Unknown]
  - Psychotic disorder [Unknown]
  - Weight increased [Unknown]
  - Akathisia [Unknown]
  - Agitation [Unknown]
  - Irritability [Unknown]
  - Photophobia [Unknown]
  - Hyperphagia [Unknown]
